FAERS Safety Report 5518819-2 (Version None)
Quarter: 2007Q4

REPORT INFORMATION
  Report Type: 
  Country: None (occurrence: None)
  Receive Date: 20071113
  Receipt Date: 20071105
  Transmission Date: 20080405
  Serious: Yes (Hospitalization)
  Sender: FDA-Public Use
  Company Number: E2090-00340-SPO-JP

PATIENT
  Age: 40 Year
  Sex: Male

DRUGS (10)
  1. ZONISAMIDE [Suspect]
     Indication: EPILEPSY
     Dosage: 300 MG, ORAL
     Route: 048
     Dates: start: 20070801, end: 20070101
  2. ZONISAMIDE [Suspect]
     Indication: PERIPHERAL NERVE INJURY
     Dosage: 300 MG, ORAL
     Route: 048
     Dates: start: 20070801, end: 20070101
  3. ZONISAMIDE [Suspect]
     Indication: SUBACUTE COMBINED CORD DEGENERATION
     Dosage: 300 MG, ORAL
     Route: 048
     Dates: start: 20070801, end: 20070101
  4. CARBAMAZEPINE [Concomitant]
  5. PYRAZOLONE (PYRAZOLONES) [Concomitant]
  6. ANTI-PYRETICS (OTHER ANALGESICS AND ANTIPYRETICS) [Concomitant]
  7. ANTI-INFLAMMOTORIES(OTHER ANTIINFLAMMATORY AGENTS IN COMB.) [Concomitant]
  8. PHENYTOIN [Concomitant]
  9. CLONAZEPAM [Concomitant]
  10. LANSOPRAZOLE [Concomitant]

REACTIONS (7)
  - ALANINE AMINOTRANSFERASE INCREASED [None]
  - ANOREXIA [None]
  - ASPARTATE AMINOTRANSFERASE INCREASED [None]
  - BLOOD ALKALINE PHOSPHATASE INCREASED [None]
  - LIVER DISORDER [None]
  - PYREXIA [None]
  - RASH [None]
